FAERS Safety Report 20231798 (Version 11)
Quarter: 2022Q3

REPORT INFORMATION
  Report Type: Report from Study
  Country: US (occurrence: US)
  Receive Date: 20211227
  Receipt Date: 20220824
  Transmission Date: 20221027
  Serious: Yes (Hospitalization, Other)
  Sender: FDA-Public Use
  Company Number: US-NOVARTISTESTPH-NVSC2021US296027

PATIENT
  Age: 63 Year
  Sex: Male

DRUGS (7)
  1. ENTRESTO [Suspect]
     Active Substance: SACUBITRIL\VALSARTAN
     Indication: Cardiac failure
     Dosage: 50 MG (24.26 MG), BID
     Route: 048
     Dates: start: 20211213
  2. SPIRONOLACTONE [Concomitant]
     Active Substance: SPIRONOLACTONE
     Indication: Cardiac failure
     Dosage: 25 MG, QD
     Route: 048
     Dates: start: 20211213
  3. METOPROLOL SUCCINATE [Concomitant]
     Active Substance: METOPROLOL SUCCINATE
     Indication: Heart rate
     Dosage: 25 MG, QD (ONE HALF TABLET)
     Route: 048
     Dates: start: 20220201
  4. UNSPECIFIED INGREDIENT [Concomitant]
     Active Substance: UNSPECIFIED INGREDIENT
     Indication: Product used for unknown indication
     Route: 065
  5. METOPROLOL TARTRATE [Concomitant]
     Active Substance: METOPROLOL TARTRATE
     Indication: Heart rate increased
     Dosage: UNK
     Route: 048
     Dates: start: 202112
  6. BUMETANIDE [Concomitant]
     Active Substance: BUMETANIDE
     Indication: Diuretic therapy
     Dosage: UNK, BID
     Route: 048
     Dates: start: 202204
  7. ACETAMINOPHEN [Concomitant]
     Active Substance: ACETAMINOPHEN
     Indication: Arthritis
     Dosage: UNK UNK, BID
     Route: 065

REACTIONS (30)
  - Fluid retention [Not Recovered/Not Resolved]
  - Heart rate decreased [Recovered/Resolved]
  - Ejection fraction decreased [Recovered/Resolved]
  - Dizziness postural [Unknown]
  - Oxygen saturation decreased [Unknown]
  - Asthenia [Unknown]
  - Feeling cold [Unknown]
  - Feeding disorder [Unknown]
  - Heart rate increased [Unknown]
  - Weight increased [Recovering/Resolving]
  - Blood cholesterol increased [Unknown]
  - Glucose tolerance impaired [Unknown]
  - Peripheral swelling [Not Recovered/Not Resolved]
  - Waist circumference decreased [Recovered/Resolved]
  - Contusion [Recovering/Resolving]
  - Gout [Recovered/Resolved]
  - Renal function test abnormal [Recovered/Resolved]
  - Amnesia [Unknown]
  - Memory impairment [Not Recovered/Not Resolved]
  - Gout [Recovering/Resolving]
  - Pain in extremity [Recovering/Resolving]
  - Arthralgia [Recovered/Resolved]
  - Hypotonia [Unknown]
  - Weight decreased [Unknown]
  - Somnolence [Unknown]
  - Hypotension [Recovering/Resolving]
  - Hypotension [Recovered/Resolved]
  - Cardiac disorder [Unknown]
  - Fatigue [Unknown]
  - Weight fluctuation [Unknown]

NARRATIVE: CASE EVENT DATE: 20211201
